FAERS Safety Report 4299477-4 (Version None)
Quarter: 2004Q1

REPORT INFORMATION
  Report Type: 
  Country: None (occurrence: None)
  Receive Date: 20040219
  Receipt Date: 20040130
  Transmission Date: 20041129
  Serious: Yes (Hospitalization)
  Sender: FDA-Public Use
  Company Number: FI-GLAXOSMITHKLINE-B0321644A

PATIENT
  Age: 48 Year
  Sex: Female

DRUGS (1)
  1. ZYBAN [Suspect]
     Indication: EX-SMOKER
     Dosage: 15MG PER DAY
     Route: 048
     Dates: start: 20040109, end: 20040124

REACTIONS (11)
  - ANGINA PECTORIS [None]
  - BREAST DISORDER [None]
  - BREAST PAIN [None]
  - BRONCHOSPASM [None]
  - BURNING SENSATION [None]
  - DYSPEPSIA [None]
  - DYSPNOEA [None]
  - MUCOUS MEMBRANE DISORDER [None]
  - MUSCLE CRAMP [None]
  - ORAL SOFT TISSUE DISORDER [None]
  - URTICARIA [None]
